FAERS Safety Report 16477231 (Version 1)
Quarter: 2019Q2

REPORT INFORMATION
  Report Type: Spontaneous
  Country: FR (occurrence: FR)
  Receive Date: 20190626
  Receipt Date: 20190626
  Transmission Date: 20190711
  Serious: Yes (Other)
  Sender: FDA-Public Use
  Company Number: FR-TEVA-2019-FR-1067494

PATIENT
  Age: 86 Year
  Sex: Female

DRUGS (6)
  1. HYDROCHLOROTHIAZIDE. [Suspect]
     Active Substance: HYDROCHLOROTHIAZIDE
     Dosage: 25 MILLIGRAMS
     Route: 048
     Dates: start: 20190513, end: 20190513
  2. NEO-MERCAZOLE [Suspect]
     Active Substance: CARBIMAZOLE
     Route: 048
     Dates: start: 20190513, end: 20190513
  3. PARACETAMOL [Concomitant]
     Active Substance: ACETAMINOPHEN
     Route: 048
  4. LOSARTAN POTASSIUM. [Suspect]
     Active Substance: LOSARTAN POTASSIUM
     Dosage: 100 MILLIGRAMS
     Route: 048
     Dates: start: 20190513, end: 20190513
  5. PROPRANOLOL (CHLORHYDRATE DE) [Suspect]
     Active Substance: PROPRANOLOL HYDROCHLORIDE
     Dosage: 10 MILLIGRAM
     Route: 048
     Dates: start: 20190513, end: 20190513
  6. TERCIAN 40 MG/ML, DRINKABLE SOLUTION IN DROPS [Concomitant]
     Route: 048

REACTIONS (4)
  - Bradycardia [Recovered/Resolved]
  - Wrong patient received product [Recovered/Resolved]
  - Product administration error [Recovered/Resolved]
  - Hypotension [Recovered/Resolved]

NARRATIVE: CASE EVENT DATE: 20190513
